FAERS Safety Report 4558767-8 (Version None)
Quarter: 2005Q1

REPORT INFORMATION
  Report Type: 
  Country: None (occurrence: None)
  Receive Date: 20050109
  Receipt Date: 20050107
  Transmission Date: 20050727
  Serious: Yes (Hospitalization)
  Sender: FDA-Public Use
  Company Number: 001-0981-M0006822

PATIENT
  Age: 69 Year
  Sex: Male
  Weight: 87.0906 kg

DRUGS (8)
  1. ATORVASTATIN (ATORVASTATIN) [Suspect]
     Indication: HYPERLIPIDAEMIA
     Dosage: SEE IMAGE
     Route: 048
     Dates: start: 19990722, end: 19990921
  2. ATORVASTATIN (ATORVASTATIN) [Suspect]
     Indication: HYPERLIPIDAEMIA
     Dosage: SEE IMAGE
     Route: 048
     Dates: start: 19990922
  3. ALBUTEROL (SALBUTERAMOL) [Concomitant]
  4. IPRATROPIUM (IPARTROPIUM [Concomitant]
  5. TRIAMCINOLONE (TRIMACINOLONE) [Concomitant]
  6. ACETYLASLICYLIC ACID (ACETYLASLICYLIC ACID) [Concomitant]
  7. ISOSRBIDE (ISOSRBIDE) [Concomitant]
  8. DILTIAEM HYDROCHLORIDE (DILTIAZEM HYDROCHLORIDE) [Concomitant]

REACTIONS (4)
  - DYSPNOEA [None]
  - GLOMERULONEPHRITIS [None]
  - HAEMOPTYSIS [None]
  - WEGENER'S GRANULOMATOSIS [None]
